FAERS Safety Report 8612264-9 (Version None)
Quarter: 2012Q3

REPORT INFORMATION
  Report Type: 
  Country: None (occurrence: None)
  Receive Date: 20120822
  Receipt Date: 20120815
  Transmission Date: 20120928
  Serious: Yes (Hospitalization)
  Sender: FDA-Public Use
  Company Number: US-ACTELION-A-US2012-70127

PATIENT
  Age: 70 Year
  Sex: Female

DRUGS (3)
  1. COUMADIN [Concomitant]
  2. FUROSEMIDE [Concomitant]
  3. TRACLEER [Suspect]
     Indication: PULMONARY ARTERIAL HYPERTENSION
     Dosage: UNK
     Route: 048

REACTIONS (4)
  - FLUID RETENTION [None]
  - RENAL FAILURE [None]
  - DYSPNOEA [None]
  - CARDIAC FAILURE CONGESTIVE [None]
